FAERS Safety Report 13852864 (Version 1)
Quarter: 2017Q3

REPORT INFORMATION
  Report Type: Spontaneous
  Country: US (occurrence: US)
  Receive Date: 20170809
  Receipt Date: 20170809
  Transmission Date: 20171127
  Serious: No
  Sender: FDA-Public Use
  Company Number: US-ROCHE-755633

PATIENT
  Sex: Female

DRUGS (1)
  1. BONIVA [Suspect]
     Active Substance: IBANDRONATE SODIUM
     Indication: PRODUCT USED FOR UNKNOWN INDICATION
     Dosage: STRENGTH, DOSE = 150 (UNITS NOT PROVIDED)
     Route: 048

REACTIONS (5)
  - Dysphagia [Unknown]
  - Chest discomfort [Unknown]
  - Sensation of foreign body [Unknown]
  - Decreased appetite [Unknown]
  - Dyspepsia [Unknown]
